FAERS Safety Report 6607742-8 (Version None)
Quarter: 2010Q1

REPORT INFORMATION
  Report Type: 
  Country: None (occurrence: None)
  Receive Date: 20100212
  Receipt Date: 20091215
  Transmission Date: 20100710
  Serious: No
  Sender: FDA-Public Use
  Company Number: 1000010810

PATIENT
  Age: 52 Year
  Sex: Female

DRUGS (2)
  1. SAVELLA [Suspect]
     Indication: FIBROMYALGIA
     Dosage: 12.5 MG (12.5 MG, 1 IN 1 D), ORAL
     Route: 048
     Dates: start: 20091211, end: 20091211
  2. SAVELLA [Suspect]
     Indication: FIBROMYALGIA
     Dosage: 25 MG (12.5 MG, 1 IN 1 D), ORAL
     Route: 048
     Dates: start: 20091212, end: 20091214

REACTIONS (5)
  - AURICULAR SWELLING [None]
  - DRY MOUTH [None]
  - PHARYNGEAL OEDEMA [None]
  - RASH [None]
  - SWELLING FACE [None]
